FAERS Safety Report 15494234 (Version 5)
Quarter: 2019Q2

REPORT INFORMATION
  Report Type: Report from Study
  Country: ES (occurrence: ES)
  Receive Date: 20181012
  Receipt Date: 20190605
  Transmission Date: 20190711
  Serious: Yes (Death, Hospitalization)
  Sender: FDA-Public Use
  Company Number: ES-PFIZER INC-2018412868

PATIENT
  Age: 66 Year
  Sex: Male

DRUGS (4)
  1. AXITINIB [Suspect]
     Active Substance: AXITINIB
     Dosage: 5 MG, 1X/DAY (DUE TO TOXICITY)
     Route: 048
     Dates: start: 20160524, end: 20160621
  2. AXITINIB [Suspect]
     Active Substance: AXITINIB
     Dosage: 5 MG, 2X/DAY (DUE TO RECOVERY)
     Route: 048
     Dates: start: 20160915, end: 20161013
  3. AXITINIB [Suspect]
     Active Substance: AXITINIB
     Indication: METASTATIC RENAL CELL CARCINOMA
     Dosage: 5 MG, 2X/DAY
     Route: 048
     Dates: start: 20151009, end: 20160523
  4. AXITINIB [Suspect]
     Active Substance: AXITINIB
     Dosage: 3 MG, 2X/DAY (DUE TO REOCVERY))
     Route: 048
     Dates: start: 20160622, end: 20160914

REACTIONS (3)
  - Hypothyroidism [Recovered/Resolved]
  - Confusional state [Fatal]
  - Aspiration [Fatal]

NARRATIVE: CASE EVENT DATE: 20160301
